FAERS Safety Report 26219455 (Version 1)
Quarter: 2025Q4

REPORT INFORMATION
  Report Type: Spontaneous
  Country: US (occurrence: US)
  Receive Date: 20251231
  Receipt Date: 20251231
  Transmission Date: 20260117
  Serious: No
  Sender: TEVA
  Company Number: US-TEVA-VS-3406188

PATIENT
  Sex: Female

DRUGS (1)
  1. MEGESTROL ACETATE [Suspect]
     Active Substance: MEGESTROL ACETATE
     Indication: Product used for unknown indication
     Route: 048
     Dates: start: 202511

REACTIONS (3)
  - Vaginal haemorrhage [Not Recovered/Not Resolved]
  - Fear [Not Recovered/Not Resolved]
  - Tissue injury [Not Recovered/Not Resolved]

NARRATIVE: CASE EVENT DATE: 20250101
